FAERS Safety Report 9259604 (Version 10)
Quarter: 2014Q2

REPORT INFORMATION
  Report Type: Spontaneous
  Country: US (occurrence: US)
  Receive Date: 20130429
  Receipt Date: 20140404
  Transmission Date: 20141212
  Serious: Yes (Disabling, Other)
  Sender: FDA-Public Use
  Company Number: US-ASTRAZENECA-2013SE27630

PATIENT
  Age: 30 Year
  Sex: Female
  Weight: 68 kg

DRUGS (38)
  1. NEXIUM [Suspect]
     Indication: GASTROOESOPHAGEAL REFLUX DISEASE
     Route: 048
     Dates: start: 1999, end: 2006
  2. NEXIUM [Suspect]
     Indication: GASTRITIS
     Route: 048
     Dates: start: 1999, end: 2006
  3. NEXIUM [Suspect]
     Indication: GASTROOESOPHAGEAL REFLUX DISEASE
     Route: 048
     Dates: start: 20031216
  4. NEXIUM [Suspect]
     Indication: GASTRITIS
     Route: 048
     Dates: start: 20031216
  5. NEXIUM [Suspect]
     Indication: GASTROOESOPHAGEAL REFLUX DISEASE
     Route: 048
     Dates: start: 2005
  6. NEXIUM [Suspect]
     Indication: GASTRITIS
     Route: 048
     Dates: start: 2005
  7. PRILOSEC [Suspect]
     Indication: GASTROOESOPHAGEAL REFLUX DISEASE
     Route: 048
     Dates: start: 1999, end: 2006
  8. PRILOSEC [Suspect]
     Indication: GASTRITIS
     Route: 048
     Dates: start: 1999, end: 2006
  9. PRILOSEC [Suspect]
     Indication: GASTROOESOPHAGEAL REFLUX DISEASE
     Route: 048
     Dates: start: 20041015
  10. PRILOSEC [Suspect]
     Indication: GASTRITIS
     Route: 048
     Dates: start: 20041015
  11. PRILOSEC [Suspect]
     Indication: GASTROOESOPHAGEAL REFLUX DISEASE
     Route: 048
     Dates: start: 20101013
  12. PRILOSEC [Suspect]
     Indication: GASTRITIS
     Route: 048
     Dates: start: 20101013
  13. PRILOSEC OTC [Suspect]
     Indication: GASTROOESOPHAGEAL REFLUX DISEASE
     Route: 048
     Dates: start: 1999, end: 2006
  14. PRILOSEC OTC [Suspect]
     Indication: GASTRITIS
     Route: 048
     Dates: start: 1999, end: 2006
  15. PREVACID [Suspect]
     Indication: GASTROOESOPHAGEAL REFLUX DISEASE
     Route: 065
     Dates: start: 1999, end: 2006
  16. PREVACID [Suspect]
     Indication: GASTRITIS
     Route: 065
     Dates: start: 1999, end: 2006
  17. ZANTAC [Suspect]
     Indication: GASTROOESOPHAGEAL REFLUX DISEASE
     Route: 065
     Dates: start: 1999, end: 2006
  18. ZANTAC [Suspect]
     Indication: GASTRITIS
     Route: 065
     Dates: start: 1999, end: 2006
  19. TAGAMET [Suspect]
     Indication: GASTROOESOPHAGEAL REFLUX DISEASE
     Route: 065
     Dates: start: 1999, end: 2006
  20. TAGAMET [Suspect]
     Indication: GASTRITIS
     Route: 065
     Dates: start: 1999, end: 2006
  21. TUMS [Suspect]
     Indication: GASTROOESOPHAGEAL REFLUX DISEASE
     Dosage: 1-4 TABLETS DAILY
     Route: 065
  22. TUMS [Suspect]
     Indication: GASTRITIS
     Dosage: 1-4 TABLETS DAILY
     Route: 065
  23. PEPTO-BISMOL [Suspect]
     Indication: GASTROOESOPHAGEAL REFLUX DISEASE
     Dosage: 2 TABLETS DAILY
     Route: 065
  24. PEPTO-BISMOL [Suspect]
     Indication: GASTRITIS
     Dosage: 2 TABLETS DAILY
     Route: 065
  25. MYLANTA [Suspect]
     Indication: GASTROOESOPHAGEAL REFLUX DISEASE
     Dosage: 2-4 TABLETS DAILY
     Route: 065
  26. MYLANTA [Suspect]
     Indication: GASTRITIS
     Dosage: 2-4 TABLETS DAILY
     Route: 065
  27. PANTOPRAZOLE/ PROTONIX [Concomitant]
     Indication: GASTROOESOPHAGEAL REFLUX DISEASE
     Dates: start: 20100122
  28. PANTOPRAZOLE/ PROTONIX [Concomitant]
     Indication: GASTROOESOPHAGEAL REFLUX DISEASE
     Dates: start: 20100122
  29. PANTOPRAZOLE/ PROTONIX [Concomitant]
     Indication: GASTROOESOPHAGEAL REFLUX DISEASE
  30. PANTOPRAZOLE/ PROTONIX [Concomitant]
     Indication: GASTROOESOPHAGEAL REFLUX DISEASE
  31. HYDROCODONE/APAP [Concomitant]
     Indication: PAIN
     Dosage: 5/500 MG EVERY FOUR HOURS AS NEEDED
     Dates: start: 20060509
  32. METHYLPREDNISOLONE [Concomitant]
     Dates: start: 20050523
  33. AVELOX [Concomitant]
     Dates: start: 20050523
  34. ZOLOFT [Concomitant]
     Dates: start: 20030829
  35. LEVAQUIN [Concomitant]
     Dates: start: 20031029
  36. LORAZEPAM [Concomitant]
     Dates: start: 20040123
  37. ACTONEL [Concomitant]
     Dates: start: 20031007
  38. CITRACAL [Concomitant]
     Dates: start: 20041015

REACTIONS (26)
  - Hip fracture [Unknown]
  - Wrist fracture [Unknown]
  - Impaired work ability [Unknown]
  - Multiple injuries [Unknown]
  - Femur fracture [Unknown]
  - Hand fracture [Unknown]
  - Joint dislocation [Unknown]
  - Tibia fracture [Unknown]
  - Osteoporosis [Unknown]
  - Bone disorder [Unknown]
  - Multiple fractures [Unknown]
  - Lower limb fracture [Unknown]
  - Ankle fracture [Unknown]
  - Foot fracture [Unknown]
  - Tendon injury [Unknown]
  - Muscle atrophy [Unknown]
  - Osteopenia [Unknown]
  - Injury [Unknown]
  - Joint injury [Unknown]
  - Contusion [Unknown]
  - Fall [Unknown]
  - Impaired healing [Unknown]
  - Arthropathy [Unknown]
  - Joint effusion [Unknown]
  - Patella fracture [Unknown]
  - Radius fracture [Unknown]
